FAERS Safety Report 17455125 (Version 1)
Quarter: 2020Q1

REPORT INFORMATION
  Report Type: Spontaneous
  Country: US (occurrence: US)
  Receive Date: 20200211
  Receipt Date: 20200211
  Transmission Date: 20200409
  Serious: Yes (Hospitalization)
  Sender: FDA-Public Use
  Company Number: None

PATIENT
  Age: 39 Year
  Sex: Female

DRUGS (2)
  1. CAPECITABINE  500MG [Suspect]
     Active Substance: CAPECITABINE
     Dosage: ?          OTHER FREQUENCY:EVERY EVENING;?
     Route: 048
  2. CAPECITABINE  500MG [Suspect]
     Active Substance: CAPECITABINE
     Indication: GASTROINTESTINAL CARCINOMA
     Dosage: ?          OTHER FREQUENCY:EVERY MORNING;?
     Route: 048

REACTIONS (3)
  - Viral infection [None]
  - Stoma obstruction [None]
  - Colitis [None]

NARRATIVE: CASE EVENT DATE: 20200210
